FAERS Safety Report 16799626 (Version 1)
Quarter: 2019Q3

REPORT INFORMATION
  Report Type: Spontaneous
  Country: US (occurrence: US)
  Receive Date: 20190722
  Receipt Date: 20190722
  Transmission Date: 20191005
  Serious: Yes (Life-Threatening)
  Sender: FDA-Public Use
  Company Number: None

PATIENT
  Age: 40 Year
  Sex: Female
  Weight: 102.06 kg

DRUGS (9)
  1. THORAZINE [Concomitant]
     Active Substance: CHLORPROMAZINE
  2. FISH OIL [Concomitant]
     Active Substance: FISH OIL
  3. BLACK TEA [Concomitant]
  4. CHLORPROMAZINE HYDROCHLORIDE. [Suspect]
     Active Substance: CHLORPROMAZINE HYDROCHLORIDE
     Indication: SCHIZOPHRENIA
     Dosage: ?          QUANTITY:1 DF DOSAGE FORM;?
     Route: 048
     Dates: start: 20180506
  5. VITAMIN B COMPLEX [Concomitant]
     Active Substance: CYANOCOBALAMIN\DEXPANTHENOL\NIACINAMIDE\PYRIDOXINE HYDROCHLORIDE\RIBOFLAVIN 5^-PHOSPHATE SODIUM\THIAMINE HYDROCHLORIDE\VITAMIN B COMPLEX
  6. VITAMIN D3 [Concomitant]
     Active Substance: CHOLECALCIFEROL
  7. COGENTIN [Concomitant]
     Active Substance: BENZTROPINE MESYLATE
  8. COLACE [Concomitant]
     Active Substance: DOCUSATE SODIUM
  9. BETAMETHAZONE [Concomitant]

REACTIONS (8)
  - Daydreaming [None]
  - Balance disorder [None]
  - Disturbance in attention [None]
  - Palpitations [None]
  - Arrhythmia [None]
  - Speech disorder [None]
  - Drug interaction [None]
  - Feeling abnormal [None]

NARRATIVE: CASE EVENT DATE: 20190320
